FAERS Safety Report 13577591 (Version 3)
Quarter: 2017Q2

REPORT INFORMATION
  Report Type: Spontaneous
  Country: DE (occurrence: DE)
  Receive Date: 20170524
  Receipt Date: 20170630
  Transmission Date: 20170830
  Serious: Yes (Other)
  Sender: FDA-Public Use
  Company Number: PHHY2017DE073633

PATIENT
  Sex: Female

DRUGS (1)
  1. FORADIL [Suspect]
     Active Substance: FORMOTEROL FUMARATE
     Indication: PRODUCT USED FOR UNKNOWN INDICATION
     Route: 055

REACTIONS (3)
  - Foreign body aspiration [Unknown]
  - Feeling abnormal [Unknown]
  - Cough [Unknown]
